FAERS Safety Report 20146207 (Version 2)
Quarter: 2022Q1

REPORT INFORMATION
  Report Type: Other
  Country: US (occurrence: US)
  Receive Date: 20211203
  Receipt Date: 20220115
  Transmission Date: 20220423
  Serious: Yes (Death)
  Sender: FDA-Public Use
  Company Number: US-NEUROCRINE BIOSCIENCES INC.-2021NBI07010

PATIENT

DRUGS (3)
  1. INGREZZA [Suspect]
     Active Substance: VALBENAZINE
     Indication: Tardive dyskinesia
     Dosage: 80 MILLIGRAM, QD
     Route: 048
     Dates: start: 2021, end: 2021
  2. LORAZEPAM [Concomitant]
     Active Substance: LORAZEPAM
     Dosage: UNK, PRN
  3. MORPHINE [Concomitant]
     Active Substance: MORPHINE
     Dosage: UNK, PRN

REACTIONS (5)
  - Death [Fatal]
  - Aphasia [Unknown]
  - Hypophagia [Unknown]
  - Weight decreased [Unknown]
  - Hypokinesia [Unknown]

NARRATIVE: CASE EVENT DATE: 20211111
